FAERS Safety Report 16827854 (Version 3)
Quarter: 2019Q4

REPORT INFORMATION
  Report Type: Spontaneous
  Country: US (occurrence: US)
  Receive Date: 20190919
  Receipt Date: 20191125
  Transmission Date: 20200122
  Serious: Yes (Hospitalization, Other)
  Sender: FDA-Public Use
  Company Number: US-PFIZER INC-2019400944

PATIENT
  Age: 52 Year
  Sex: Female
  Weight: 82.54 kg

DRUGS (3)
  1. LYRICA [Suspect]
     Active Substance: PREGABALIN
     Indication: INTERVERTEBRAL DISC PROTRUSION
     Dosage: 200 MG, 2X/DAY (200 MG TWICE A DAY BY MOUTH)
     Route: 048
     Dates: start: 2018, end: 201908
  2. LYRICA [Suspect]
     Active Substance: PREGABALIN
     Indication: ARTHROPATHY
     Dosage: 200 MG, 2X/DAY (200 MG TWICE A DAY BY MOUTH)
     Route: 048
     Dates: start: 201805
  3. LYRICA [Suspect]
     Active Substance: PREGABALIN
     Indication: PAIN

REACTIONS (5)
  - Anxiety [Unknown]
  - Condition aggravated [Unknown]
  - Post-traumatic stress disorder [Unknown]
  - Foot fracture [Not Recovered/Not Resolved]
  - Intervertebral disc protrusion [Unknown]
